FAERS Safety Report 12584841 (Version 9)
Quarter: 2017Q1

REPORT INFORMATION
  Report Type: Spontaneous
  Country: US (occurrence: US)
  Receive Date: 20160722
  Receipt Date: 20170124
  Transmission Date: 20170428
  Serious: Yes (Hospitalization, Other)
  Sender: FDA-Public Use
  Company Number: US-ACTELION-A-US2016-139318

PATIENT
  Age: 69 Year
  Sex: Female
  Weight: 53.61 kg

DRUGS (7)
  1. UPTRAVI [Suspect]
     Active Substance: SELEXIPAG
     Indication: PULMONARY HYPERTENSION
     Dosage: 200 MCG, BID
     Route: 048
     Dates: start: 20160709
  2. LETAIRIS [Suspect]
     Active Substance: AMBRISENTAN
     Indication: PULMONARY HYPERTENSION
     Dosage: 10 MG, QD
     Route: 065
     Dates: start: 20150709
  3. SILDENAFIL. [Concomitant]
     Active Substance: SILDENAFIL
  4. REVATIO [Concomitant]
     Active Substance: SILDENAFIL CITRATE
  5. UPTRAVI [Suspect]
     Active Substance: SELEXIPAG
     Dosage: 1600 MCG, BID
     Route: 048
     Dates: start: 20160709
  6. UPTRAVI [Suspect]
     Active Substance: SELEXIPAG
     Dosage: 800 MCG, BID
     Route: 048
     Dates: start: 20160628
  7. UPTRAVI [Suspect]
     Active Substance: SELEXIPAG
     Dosage: 1000 MCG, BID
     Route: 048
     Dates: start: 2016

REACTIONS (20)
  - Unevaluable event [Unknown]
  - Exercise lack of [Unknown]
  - Fatigue [Unknown]
  - Fluid retention [Unknown]
  - Pulmonary arterial hypertension [Unknown]
  - Right ventricular enlargement [Unknown]
  - Tachycardia [Unknown]
  - Blood potassium decreased [Unknown]
  - Urinary tract infection [Recovered/Resolved]
  - Localised infection [Recovering/Resolving]
  - Condition aggravated [Unknown]
  - Skin ulcer [Unknown]
  - Oedema [Unknown]
  - Somnolence [Unknown]
  - Cystitis [Not Recovered/Not Resolved]
  - Hypotension [Unknown]
  - Myocardial infarction [Unknown]
  - Fluid overload [Unknown]
  - Atrial flutter [Recovered/Resolved]
  - Atrial fibrillation [Recovered/Resolved]
